FAERS Safety Report 13886193 (Version 1)
Quarter: 2017Q3

REPORT INFORMATION
  Report Type: Spontaneous
  Country: US (occurrence: US)
  Receive Date: 20170821
  Receipt Date: 20170821
  Transmission Date: 20171127
  Serious: No
  Sender: FDA-Public Use
  Company Number: US-MYLANLABS-2017M1034061

PATIENT
  Sex: Female
  Weight: 71 kg

DRUGS (1)
  1. DEXTROAMPHETAMINE SULFATE EXTENDED-RELEASE CAPSULES [Suspect]
     Active Substance: DEXTROAMPHETAMINE SULFATE
     Indication: ATTENTION DEFICIT/HYPERACTIVITY DISORDER
     Dosage: 1 DF, QD
     Route: 048
     Dates: start: 201705

REACTIONS (4)
  - Abdominal pain upper [Unknown]
  - Abdominal discomfort [Unknown]
  - Rash pruritic [Unknown]
  - Dermatitis [Unknown]
